FAERS Safety Report 16952175 (Version 1)
Quarter: 2019Q4

REPORT INFORMATION
  Report Type: Spontaneous
  Country: US (occurrence: US)
  Receive Date: 20191023
  Receipt Date: 20191023
  Transmission Date: 20200122
  Serious: Yes (Other)
  Sender: FDA-Public Use
  Company Number: US-PFIZER INC-2019455050

PATIENT
  Age: 53 Year
  Sex: Female
  Weight: 71.2 kg

DRUGS (6)
  1. LETROZOLE. [Concomitant]
     Active Substance: LETROZOLE
     Dosage: UNK
  2. LEVOTHYROXINE. [Concomitant]
     Active Substance: LEVOTHYROXINE
     Dosage: UNK
  3. HYDROCODONE/ACETAMINOPHEN [Concomitant]
     Active Substance: ACETAMINOPHEN\HYDROCODONE
     Dosage: UNK
  4. METOPROLOL SUCCINATE. [Concomitant]
     Active Substance: METOPROLOL SUCCINATE
     Dosage: UNK
  5. IBRANCE [Suspect]
     Active Substance: PALBOCICLIB
     Indication: BREAST CANCER FEMALE
     Dosage: 125 MG, CYCLIC(DAILY FOR 21 DAYS)
     Route: 048
     Dates: start: 201806
  6. FROVATRIPTAN SUCCINATE. [Concomitant]
     Active Substance: FROVATRIPTAN SUCCINATE
     Dosage: UNK

REACTIONS (2)
  - Pneumothorax [Unknown]
  - Lung hyperinflation [Unknown]
